FAERS Safety Report 10244946 (Version 1)
Quarter: 2014Q2

REPORT INFORMATION
  Report Type: Spontaneous
  Country: US (occurrence: US)
  Receive Date: 20140618
  Receipt Date: 20140618
  Transmission Date: 20141212
  Serious: No
  Sender: FDA-Public Use
  Company Number: US-GALDERMA-US14000829

PATIENT
  Age: 59 Year
  Sex: Male

DRUGS (2)
  1. MIRVASO (BRIMONIDINE) TOPICAL GEL, 0.33% [Suspect]
     Dosage: 0.33%
     Route: 061
     Dates: start: 201312, end: 201401
  2. MIRVASO (BRIMONIDINE) TOPICAL GEL, 0.33% [Suspect]
     Dosage: 0.33%
     Route: 061
     Dates: start: 201401, end: 20140301

REACTIONS (9)
  - Blister [Not Recovered/Not Resolved]
  - Rash macular [Not Recovered/Not Resolved]
  - Feeling hot [Not Recovered/Not Resolved]
  - Feeling abnormal [Not Recovered/Not Resolved]
  - Facial pain [Not Recovered/Not Resolved]
  - Skin tightness [Not Recovered/Not Resolved]
  - Asthenia [Not Recovered/Not Resolved]
  - Flushing [Not Recovered/Not Resolved]
  - Erythema [Not Recovered/Not Resolved]
